FAERS Safety Report 8588765-9 (Version None)
Quarter: 2012Q3

REPORT INFORMATION
  Report Type: 
  Country: None (occurrence: None)
  Receive Date: 20120813
  Receipt Date: 20120808
  Transmission Date: 20120928
  Serious: Yes (Death, Hospitalization, Other)
  Sender: FDA-Public Use
  Company Number: PHHY2012BR069111

PATIENT
  Sex: Male
  Weight: 80 kg

DRUGS (7)
  1. BEROTEC [Concomitant]
     Dosage: UNK UKN, UNK
  2. ALDACTONE [Concomitant]
     Dosage: UNK UKN, UNK
  3. EXELON [Suspect]
     Indication: DEMENTIA ALZHEIMER'S TYPE
     Dosage: 1 ADHESIVE (9 MG/5 CM2) / 24 HOURS
     Route: 062
  4. CARVEDILOL [Concomitant]
     Indication: CARDIAC DISORDER
     Dosage: UNK UKN, UNK
  5. CAPTOPRIL [Concomitant]
     Indication: HYPERTENSION
     Dosage: UNK UKN, UNK
  6. ATROVENT [Concomitant]
     Dosage: UNK UKN, UNK
  7. FUROSEMIDE [Concomitant]
     Indication: DIURETIC THERAPY
     Dosage: UNK UKN, UNK

REACTIONS (4)
  - LUNG INFECTION [None]
  - PNEUMONIA [None]
  - RESPIRATORY FAILURE [None]
  - DEMENTIA ALZHEIMER'S TYPE [None]
